FAERS Safety Report 6398725-4 (Version None)
Quarter: 2009Q4

REPORT INFORMATION
  Report Type: 
  Country: None (occurrence: None)
  Receive Date: 20091013
  Receipt Date: 20091006
  Transmission Date: 20100525
  Serious: Yes (Other)
  Sender: FDA-Public Use
  Company Number: PHHY2009BR43205

PATIENT
  Age: 75 Year
  Sex: Female
  Weight: 74 kg

DRUGS (3)
  1. TEGRETOL-XR [Suspect]
     Indication: EPILEPSY
     Dosage: 200 MG, BID
     Route: 048
  2. LORATADINE [Concomitant]
     Dosage: 2 TABLETS AT NIGHT
  3. LORATADINE [Concomitant]
     Dosage: 2 TABLETS (10 MG)
     Dates: start: 20091006

REACTIONS (5)
  - COORDINATION ABNORMAL [None]
  - INSOMNIA [None]
  - PRURITUS [None]
  - TREMOR [None]
  - URTICARIA [None]
